FAERS Safety Report 5050635-0 (Version None)
Quarter: 2006Q3

REPORT INFORMATION
  Report Type: 
  Country: None (occurrence: None)
  Receive Date: 20060713
  Receipt Date: 20060704
  Transmission Date: 20061208
  Serious: Yes (Hospitalization)
  Sender: FDA-Public Use
  Company Number: FR-SANOFI-SYNTHELABO-A02200601769

PATIENT
  Age: 47 Year
  Sex: Female

DRUGS (9)
  1. REQUIP [Suspect]
     Indication: PARKINSON'S DISEASE
     Dosage: DOSE INCREASED UNTIL 4 MG X 3 DAILY
     Route: 048
     Dates: start: 20050208, end: 20050425
  2. REQUIP [Suspect]
     Route: 048
     Dates: start: 20050426, end: 20060108
  3. REQUIP [Suspect]
     Route: 048
     Dates: start: 20060109, end: 20060531
  4. REQUIP [Suspect]
     Route: 048
     Dates: start: 20060531
  5. REQUIP [Suspect]
     Route: 048
     Dates: start: 20060531
  6. SEROPRAM [Suspect]
     Indication: DEPRESSION
     Route: 048
     Dates: start: 20040115
  7. SINEMET [Suspect]
     Indication: PARKINSON'S DISEASE
     Route: 048
     Dates: start: 20050426, end: 20051026
  8. SINEMET [Suspect]
     Route: 048
     Dates: start: 20051027, end: 20060530
  9. STILNOX [Suspect]
     Indication: DRUG USE FOR UNKNOWN INDICATION
     Route: 048
     Dates: start: 20040115

REACTIONS (2)
  - NEUTROPENIA [None]
  - WHITE BLOOD CELL COUNT DECREASED [None]
